FAERS Safety Report 19891198 (Version 1)
Quarter: 2021Q3

REPORT INFORMATION
  Report Type: Spontaneous
  Country: CA (occurrence: CA)
  Receive Date: 20210928
  Receipt Date: 20210928
  Transmission Date: 20211014
  Serious: Yes (Hospitalization, Other)
  Sender: FDA-Public Use
  Company Number: CA-PFIZER INC-202101235317

PATIENT
  Age: 38 Year
  Sex: Male

DRUGS (29)
  1. FOLIC ACID. [Suspect]
     Active Substance: FOLIC ACID
     Dosage: 5 MG, 1 EVERY 1 DAYS
     Route: 048
  2. OMNARIS [Suspect]
     Active Substance: CICLESONIDE
     Route: 055
  3. SINGULAIR [Suspect]
     Active Substance: MONTELUKAST SODIUM
     Indication: ASTHMA
     Dosage: 10 MG, 1 EVERY 1 DAYS
     Route: 065
  4. SPIRIVA [Suspect]
     Active Substance: TIOTROPIUM BROMIDE MONOHYDRATE
     Indication: ASTHMA
     Route: 065
  5. NUCALA [Suspect]
     Active Substance: MEPOLIZUMAB
     Route: 065
  6. PREDNISONE. [Suspect]
     Active Substance: PREDNISONE
     Dosage: 10 MG, 1 EVERY 1 DAYS
     Route: 065
  7. UMECLIDINIUM BROMIDE [Suspect]
     Active Substance: UMECLIDINIUM BROMIDE
     Indication: ASTHMA
     Route: 055
  8. METHOTREXATE SODIUM. [Suspect]
     Active Substance: METHOTREXATE SODIUM
     Indication: VASCULITIS
     Dosage: 25 MG, 1 EVERY 1 WEEKS
     Route: 048
  9. METHOTREXATE SODIUM. [Suspect]
     Active Substance: METHOTREXATE SODIUM
     Dosage: 15 MG, 1 EVERY 1 WEEKS
     Route: 065
  10. ENTYVIO [Suspect]
     Active Substance: VEDOLIZUMAB
     Route: 065
  11. PREDNISONE. [Suspect]
     Active Substance: PREDNISONE
     Dosage: 20 MG
     Route: 065
  12. PREDNISONE. [Suspect]
     Active Substance: PREDNISONE
     Dosage: 30 MG
     Route: 065
  13. ERGOCALCIFEROL. [Concomitant]
     Active Substance: ERGOCALCIFEROL
     Indication: SUPPLEMENTATION THERAPY
  14. POLYSACCHARIDE?IRON COMPLEX [Concomitant]
     Active Substance: FERRIC POLYSACCHARIDE COMPLEX
     Dosage: 150 MG, 1 EVERY 1 DAYS
     Route: 065
  15. ACETAMINOPHEN. [Suspect]
     Active Substance: ACETAMINOPHEN
     Dosage: UNK
     Route: 065
  16. PREDNISONE. [Suspect]
     Active Substance: PREDNISONE
     Dosage: 10 MG
     Route: 065
  17. PREDNISONE. [Suspect]
     Active Substance: PREDNISONE
     Dosage: UNK
     Route: 065
  18. VEDOLIZUMAB [Suspect]
     Active Substance: VEDOLIZUMAB
     Indication: COLITIS ULCERATIVE
     Route: 042
  19. CALCIUM [Concomitant]
     Active Substance: CALCIUM
     Indication: SUPPLEMENTATION THERAPY
     Route: 065
  20. FORMOTEROL/MOMETASONE [Suspect]
     Active Substance: FORMOTEROL\MOMETASONE
     Dosage: 2 DF, 2 EVERY 1 DAYS
     Route: 055
  21. PREDNISONE. [Suspect]
     Active Substance: PREDNISONE
     Dosage: 30 MG
     Route: 065
  22. SALBUTAMOL [Suspect]
     Active Substance: ALBUTEROL
     Route: 065
  23. BUDESONIDE/FORMOTEROL FUMARATE [Suspect]
     Active Substance: BUDESONIDE\FORMOTEROL FUMARATE
     Route: 055
  24. TYLENOL [Suspect]
     Active Substance: ACETAMINOPHEN
     Route: 065
  25. CYANOCOBALAMIN. [Concomitant]
     Active Substance: CYANOCOBALAMIN
     Indication: SUPPLEMENTATION THERAPY
     Dosage: 1000 MG, 1 EVERY 1 DAYS
  26. VITAMIN B12 [Concomitant]
     Active Substance: CYANOCOBALAMIN
     Indication: SUPPLEMENTATION THERAPY
     Dosage: 1000 UG, 1 EVERY 1 DAYS
     Route: 048
  27. PREDNISONE. [Suspect]
     Active Substance: PREDNISONE
     Dosage: 50 MG
     Route: 065
  28. FOLATE [Concomitant]
     Active Substance: FOLATE SODIUM
     Dosage: 5 MG, 1 EVERY 1 DAYS
     Route: 048
  29. VITAMIN D [VITAMIN D NOS] [Concomitant]
     Active Substance: VITAMIN D NOS
     Indication: SUPPLEMENTATION THERAPY
     Route: 065

REACTIONS (31)
  - Abdominal pain [Unknown]
  - Pericardial effusion [Unknown]
  - Wheezing [Unknown]
  - Anaemia [Unknown]
  - Dyspnoea [Unknown]
  - Obstructive airways disorder [Unknown]
  - Sinusitis [Unknown]
  - Systolic dysfunction [Unknown]
  - Colitis [Unknown]
  - Insomnia [Unknown]
  - Photophobia [Unknown]
  - Asthma [Unknown]
  - Decreased appetite [Unknown]
  - Iron deficiency [Unknown]
  - Dyspnoea exertional [Unknown]
  - Interstitial lung disease [Unknown]
  - Myalgia [Unknown]
  - Vasculitis [Unknown]
  - Cough [Unknown]
  - Pulmonary function test decreased [Unknown]
  - Therapeutic product effect incomplete [Unknown]
  - Blood test abnormal [Unknown]
  - Chest discomfort [Unknown]
  - Condition aggravated [Unknown]
  - Eosinophilia [Unknown]
  - Headache [Unknown]
  - Treatment noncompliance [Unknown]
  - Blood pressure decreased [Unknown]
  - Gastrointestinal disorder [Unknown]
  - Rectal haemorrhage [Unknown]
  - Off label use [Unknown]
